FAERS Safety Report 8761400 (Version 3)
Quarter: 2012Q4

REPORT INFORMATION
  Report Type: 
  Country: CH (occurrence: CH)
  Receive Date: 20120829
  Receipt Date: 20121211
  Transmission Date: 20130627
  Serious: Yes (Hospitalization, Other)
  Sender: FDA-Public Use
  Company Number: CH-PFIZER INC-2012210143

PATIENT
  Age: 78 Year
  Sex: Female

DRUGS (11)
  1. TRIATEC [Suspect]
     Indication: ESSENTIAL HYPERTENSION
     Dosage: 5 mg, daily
     Route: 048
     Dates: end: 20120525
  2. VOLTAREN [Suspect]
     Indication: PAIN IN JOINT
     Dosage: 100 mg,daily
     Route: 048
     Dates: end: 20120525
  3. LYRICA [Concomitant]
     Dosage: UNK
  4. FLURAZEPAM [Concomitant]
     Dosage: UNK
  5. CYMBALTA [Concomitant]
     Dosage: UNK
  6. MAGNESIUM [Concomitant]
     Dosage: UNK
     Dates: end: 201205
  7. TEBOKAN [Concomitant]
     Dosage: UNK
     Dates: end: 201205
  8. PANTOZOL [Concomitant]
     Dosage: UNK
     Dates: end: 201205
  9. DAFALGAN [Concomitant]
     Dosage: UNK
     Dates: end: 201205
  10. PENICILLIN NOS [Concomitant]
  11. ACTIVOMIN [Concomitant]
     Dosage: UNK

REACTIONS (2)
  - Colitis ischaemic [Recovered/Resolved]
  - Hypokalaemia [Recovered/Resolved]
